FAERS Safety Report 9220778 (Version 1)
Quarter: 2013Q2

REPORT INFORMATION
  Report Type: Spontaneous
  Country: US (occurrence: US)
  Receive Date: 20130409
  Receipt Date: 20130409
  Transmission Date: 20140414
  Serious: No
  Sender: FDA-Public Use
  Company Number: US-009507513-1304USA003942

PATIENT
  Sex: Female

DRUGS (2)
  1. LOTRIMIN ULTRA [Suspect]
     Indication: RASH
     Dosage: UNK, UNKNOWN
     Route: 061
  2. LOTRIMIN ULTRA [Suspect]
     Indication: MEDICAL OBSERVATION

REACTIONS (4)
  - Peripheral coldness [Unknown]
  - Pain in extremity [Unknown]
  - Erythema [Unknown]
  - Off label use [Unknown]
